FAERS Safety Report 5024891-9 (Version None)
Quarter: 2006Q2

REPORT INFORMATION
  Report Type: 
  Country: None (occurrence: None)
  Receive Date: 20060607
  Receipt Date: 20060522
  Transmission Date: 20061013
  Serious: Yes (Hospitalization)
  Sender: FDA-Public Use
  Company Number: DSA_28246_2006

PATIENT
  Age: 22 Year
  Sex: Female

DRUGS (17)
  1. TEMESTA [Suspect]
     Indication: SCHIZOPHRENIA, UNDIFFERENTIATED TYPE
     Dosage: 5 MG
     Dates: start: 20060102, end: 20060102
  2. TEMESTA [Suspect]
     Indication: SCHIZOPHRENIA, UNDIFFERENTIATED TYPE
     Dosage: 7.5 MG PO
     Route: 048
     Dates: start: 20060103, end: 20060104
  3. GEWALCAM [Concomitant]
  4. TEMESTA [Suspect]
     Indication: SCHIZOPHRENIA, UNDIFFERENTIATED TYPE
     Dosage: 7.5 MG
     Dates: start: 20060130, end: 20060217
  5. TEMESTA [Suspect]
     Indication: SCHIZOPHRENIA, UNDIFFERENTIATED TYPE
     Dosage: 3.5 MG PO
     Route: 048
     Dates: start: 20060218, end: 20060301
  6. TEMESTA [Suspect]
     Indication: SCHIZOPHRENIA, UNDIFFERENTIATED TYPE
     Dosage: 2.5 MG PO
     Route: 048
     Dates: start: 20060302, end: 20060306
  7. MIRTAZAPINE [Suspect]
     Dosage: 30 MG
     Dates: start: 20060102, end: 20060108
  8. RISPERDAL [Suspect]
     Dosage: 4 MG
     Dates: start: 20060102, end: 20060102
  9. RISPERDAL [Suspect]
     Dosage: 6 MG
     Dates: start: 20060103, end: 20060116
  10. RISPERDAL [Suspect]
     Dosage: 4 MG
     Dates: start: 20060117, end: 20060306
  11. DOMINAL [Suspect]
     Dosage: 80 MG
     Dates: start: 20060102, end: 20060115
  12. DEPAKENE [Suspect]
     Dosage: 500 MG
     Dates: start: 20060102, end: 20060102
  13. DEPAKENE [Suspect]
     Dosage: 1000 MG
     Dates: start: 20060103, end: 20060129
  14. DEPAKENE [Suspect]
     Dosage: 800 MG
     Dates: start: 20060130, end: 20060306
  15. CIPROXIN [Suspect]
     Dosage: 250 MG
     Dates: start: 20060102, end: 20060107
  16. GEWALCAM [Concomitant]
  17. MOVICOL [Concomitant]

REACTIONS (3)
  - HEPATIC STEATOSIS [None]
  - HEPATOCELLULAR DAMAGE [None]
  - HYPERTRIGLYCERIDAEMIA [None]
